FAERS Safety Report 4941192-5 (Version None)
Quarter: 2006Q1

REPORT INFORMATION
  Report Type: 
  Country: None (occurrence: None)
  Receive Date: 20060308
  Receipt Date: 20060220
  Transmission Date: 20060701
  Serious: Yes (Other)
  Sender: FDA-Public Use
  Company Number: DSA_27825_2006

PATIENT
  Age: 27 Year
  Sex: Female

DRUGS (6)
  1. ENALAPRIL MALEATE [Suspect]
     Indication: BLOOD PRESSURE ABNORMAL
     Dosage: 5 MG Q DAY UNK
     Route: 065
  2. ENALAPRIL MALEATE [Suspect]
     Indication: BLOOD PRESSURE ABNORMAL
     Dosage: 10 MG Q DAY UNK
     Route: 065
  3. LABETALOL HCL [Concomitant]
  4. AMILORIDE HCL [Concomitant]
  5. HYDROCHLOROTHIAZIDE [Concomitant]
  6. PRAZOSIN [Concomitant]

REACTIONS (3)
  - DRUG EXPOSURE DURING PREGNANCY [None]
  - INDUCED LABOUR [None]
  - OLIGOHYDRAMNIOS [None]
